FAERS Safety Report 5343162-4 (Version None)
Quarter: 2007Q2

REPORT INFORMATION
  Report Type: 
  Country: None (occurrence: None)
  Receive Date: 20070416
  Receipt Date: 20070225
  Transmission Date: 20071010
  Serious: No
  Sender: FDA-Public Use
  Company Number: 2007SP000642

PATIENT
  Age: 57 Year
  Sex: Female
  Weight: 83.9154 kg

DRUGS (6)
  1. LUNESTA [Suspect]
     Indication: INSOMNIA
     Dosage: 3 MG;HS;ORAL
     Route: 048
     Dates: start: 20061201
  2. LOTREL [Concomitant]
  3. FAMOTIDINE [Concomitant]
  4. METHADONE HCL [Concomitant]
  5. PAXIL [Concomitant]
  6. AVANDAMET [Concomitant]

REACTIONS (1)
  - INITIAL INSOMNIA [None]
